FAERS Safety Report 7320596-X (Version None)
Quarter: 2011Q1

REPORT INFORMATION
  Report Type: 
  Country: None (occurrence: None)
  Receive Date: 20110218
  Receipt Date: 20110218
  Transmission Date: 20110831
  Serious: Yes (Hospitalization)
  Sender: FDA-Public Use
  Company Number: None

PATIENT
  Sex: Female
  Weight: 55 kg

DRUGS (6)
  1. PANTOPRAZOLE [Concomitant]
  2. EPOETIN [Concomitant]
  3. NORMAL SALINE IV [Concomitant]
  4. METRONIDAZOLE [Suspect]
     Indication: ARTHRITIS INFECTIVE
     Dosage: 100 ML Q8H IV
     Route: 042
     Dates: start: 20110213, end: 20110218
  5. METRONIDAZOLE [Suspect]
     Indication: URINARY TRACT INFECTION
     Dosage: 100 ML Q8H IV
     Route: 042
     Dates: start: 20110213, end: 20110218
  6. LEVETIRACETAM [Concomitant]

REACTIONS (1)
  - ATRIAL FIBRILLATION [None]
